FAERS Safety Report 8379271-5 (Version None)
Quarter: 2012Q2

REPORT INFORMATION
  Report Type: 
  Country: None (occurrence: None)
  Receive Date: 20120523
  Receipt Date: 20120511
  Transmission Date: 20120825
  Serious: Yes (Hospitalization, Other)
  Sender: FDA-Public Use
  Company Number: US-ELI_LILLY_AND_COMPANY-US201112006491

PATIENT
  Sex: Male

DRUGS (13)
  1. FORTEO [Suspect]
     Dosage: 20 UG, QD
     Dates: start: 20111215
  2. FORTEO [Suspect]
     Dosage: 20 UG, QD
  3. FORTEO [Suspect]
     Indication: OSTEOPOROSIS
     Dosage: 20 UG, QD
  4. FORTEO [Suspect]
     Dosage: 20 UG, QD
  5. WELLBUTRIN [Concomitant]
  6. FORTEO [Suspect]
     Dosage: 20 UG, QD
     Route: 065
  7. NEURONTIN [Concomitant]
     Indication: PAIN
     Dosage: UNK
  8. VALTREX [Concomitant]
     Indication: RASH
  9. MULTI-VITAMINS [Concomitant]
     Dosage: UNK, QD
  10. TUMS                               /00193601/ [Concomitant]
     Indication: ANTACID THERAPY
  11. VITAMIN D [Concomitant]
     Dosage: 2000 IU, QD
  12. XANAX [Concomitant]
     Dosage: UNK
  13. ANALGESICS [Concomitant]
     Indication: PAIN

REACTIONS (16)
  - ARTHRALGIA [None]
  - URINE ABNORMALITY [None]
  - INFLUENZA LIKE ILLNESS [None]
  - BONE DENSITY DECREASED [None]
  - HIP FRACTURE [None]
  - MALAISE [None]
  - FRACTURE [None]
  - WEIGHT INCREASED [None]
  - FATIGUE [None]
  - HYPERHIDROSIS [None]
  - RIB FRACTURE [None]
  - FEELING HOT [None]
  - PYREXIA [None]
  - MYALGIA [None]
  - INJECTION SITE PAIN [None]
  - ASTHENIA [None]
